FAERS Safety Report 20449512 (Version 1)
Quarter: 2022Q1

REPORT INFORMATION
  Report Type: Spontaneous
  Country: US (occurrence: None)
  Receive Date: 20220208
  Receipt Date: 20220208
  Transmission Date: 20220423
  Serious: No
  Sender: FDA-Public Use
  Company Number: None

PATIENT
  Age: 71 Year
  Sex: Female

DRUGS (1)
  1. METOPROLOL SUCCINATE [Suspect]
     Active Substance: METOPROLOL SUCCINATE
     Dosage: FREQUENCY : TWICE A DAY;?
     Route: 048
     Dates: start: 20211116

REACTIONS (3)
  - Abdominal distension [None]
  - Product taste abnormal [None]
  - Fatigue [None]

NARRATIVE: CASE EVENT DATE: 20211116
